FAERS Safety Report 15697825 (Version 1)
Quarter: 2018Q4

REPORT INFORMATION
  Report Type: Spontaneous
  Country: US (occurrence: US)
  Receive Date: 20181126
  Receipt Date: 20181126
  Transmission Date: 20190205
  Serious: No
  Sender: FDA-Public Use
  Company Number: None

PATIENT
  Age: 74 Year
  Sex: Male

DRUGS (1)
  1. ECULIZUMAB [Suspect]
     Active Substance: ECULIZUMAB
     Indication: ANAEMIA
     Route: 042
     Dates: start: 20180923

REACTIONS (2)
  - Extravasation [None]
  - Underdose [None]

NARRATIVE: CASE EVENT DATE: 20180921
